FAERS Safety Report 16488720 (Version 1)
Quarter: 2019Q2

REPORT INFORMATION
  Report Type: Spontaneous
  Country: US (occurrence: US)
  Receive Date: 20190627
  Receipt Date: 20190627
  Transmission Date: 20190711
  Serious: Yes (Other)
  Sender: FDA-Public Use
  Company Number: US-009507513-1906USA008553

PATIENT
  Sex: Female
  Weight: 55.33 kg

DRUGS (1)
  1. NEXPLANON [Suspect]
     Active Substance: ETONOGESTREL
     Dosage: 1 ROD, EVERY 3 YEARS
     Dates: start: 2016

REACTIONS (4)
  - Device deployment issue [Not Recovered/Not Resolved]
  - Complication associated with device [Not Recovered/Not Resolved]
  - No adverse event [Unknown]
  - Device dislocation [Not Recovered/Not Resolved]

NARRATIVE: CASE EVENT DATE: 2017
